FAERS Safety Report 6120897-7 (Version None)
Quarter: 2009Q1

REPORT INFORMATION
  Report Type: 
  Country: None (occurrence: None)
  Receive Date: 20090317
  Receipt Date: 20090212
  Transmission Date: 20090719
  Serious: No
  Sender: FDA-Public Use
  Company Number: US-BAYER-200814180BCC

PATIENT
  Age: 34 Year
  Sex: Male
  Weight: 181 kg

DRUGS (1)
  1. ALEVE [Suspect]
     Indication: CELLULITIS
     Dosage: UNIT DOSE: 220 MG
     Route: 048
     Dates: start: 20081022

REACTIONS (6)
  - EYE SWELLING [None]
  - FACIAL PALSY [None]
  - HYPOAESTHESIA ORAL [None]
  - LACRIMATION INCREASED [None]
  - SKIN INDURATION [None]
  - SWELLING FACE [None]
